FAERS Safety Report 10386019 (Version 1)
Quarter: 2014Q1

REPORT INFORMATION
  Report Type: Spontaneous
  Country: US (occurrence: None)
  Receive Date: 20140306
  Receipt Date: 20140306
  Transmission Date: 20141002
  Serious: Yes (Other)
  Sender: FDA-Public Use
  Company Number: 163-21880-13041194

PATIENT
  Age: 75 Year
  Sex: Male
  Weight: 63.96 kg

DRUGS (14)
  1. REVLIMID [Suspect]
     Indication: PLASMA CELL MYELOMA
     Route: 048
     Dates: start: 20120907
  2. ACYCLOVIR (ACICLOVIR) (ACICLOVIR) [Concomitant]
  3. BUMETANIDE [Concomitant]
  4. CLONIDINE HCL (CLONIDINE HYDROCHLORIDE) INJECTION [Concomitant]
  5. COUMADIN (WARFARIN SODIUM) [Concomitant]
  6. DEXAMETHASONE [Concomitant]
  7. DILTIAZEM CD (DILTIAZEM HYDROCHLORIDE) [Concomitant]
  8. FINASTERIDE [Concomitant]
  9. LANTUS (INSULIN GLARGINE) [Concomitant]
  10. FUROSEMIDE [Concomitant]
  11. POTASSIUM BICARBONATE [Concomitant]
  12. AMBIEN (ZOLPIDEM TARTRATE) [Concomitant]
  13. HYDROCODONE [Concomitant]
  14. MS CONTIN (MORPHINE SULFATE) [Concomitant]

REACTIONS (1)
  - Adverse drug reaction [None]
